FAERS Safety Report 5535790-8 (Version None)
Quarter: 2007Q4

REPORT INFORMATION
  Report Type: 
  Country: None (occurrence: None)
  Receive Date: 20071206
  Receipt Date: 20071127
  Transmission Date: 20080405
  Serious: Yes (Death, Hospitalization)
  Sender: FDA-Public Use
  Company Number: A0364448A

PATIENT
  Age: 81 Year
  Sex: Male
  Weight: 84.1 kg

DRUGS (12)
  1. AVANDIA [Suspect]
     Dosage: 4MG PER DAY
     Route: 048
     Dates: start: 20000101, end: 20020201
  2. ZAROXOLYN [Concomitant]
  3. ZESTRIL [Concomitant]
  4. ATENOLOL [Concomitant]
  5. ISOSORBIDE DINITRATE [Concomitant]
  6. COUMADIN [Concomitant]
  7. KLOR-CON [Concomitant]
  8. AMBIEN [Concomitant]
  9. PRILOSEC [Concomitant]
  10. LASIX [Concomitant]
     Indication: FLUID RETENTION
     Route: 048
  11. DIGOXIN [Concomitant]
     Route: 048
  12. GLUCOTROL [Concomitant]
     Route: 048

REACTIONS (6)
  - ASTHENIA [None]
  - CARDIAC FAILURE CONGESTIVE [None]
  - CORONARY ARTERY DISEASE [None]
  - FATIGUE [None]
  - JOINT SWELLING [None]
  - RENAL FAILURE [None]
